FAERS Safety Report 7436271-7 (Version None)
Quarter: 2011Q2

REPORT INFORMATION
  Report Type: 
  Country: None (occurrence: None)
  Receive Date: 20110426
  Receipt Date: 20110411
  Transmission Date: 20111010
  Serious: Yes (Hospitalization)
  Sender: FDA-Public Use
  Company Number: TW-MYLANLABS-2011S1007824

PATIENT
  Age: 44 Year
  Sex: Male

DRUGS (8)
  1. QUETIAPINE [Interacting]
     Indication: SCHIZOPHRENIA
     Dosage: 700 MG/DAY
     Route: 065
     Dates: start: 20091101
  2. QUETIAPINE [Interacting]
     Dosage: 1000 MG/DAY
     Route: 065
     Dates: start: 20091101
  3. GEMFIBROZIL [Concomitant]
     Dosage: 1200 MG/DAY
     Route: 065
  4. GLIPIZIDE [Concomitant]
     Dosage: 5 MG/DAY
     Route: 065
  5. LORAZEPAM [Concomitant]
     Dosage: 3 MG/DAY
     Route: 065
  6. METFORMIN [Concomitant]
     Dosage: 1000 MG/DAY
     Route: 065
  7. VALPROIC ACID [Suspect]
     Indication: SCHIZOPHRENIA
     Dosage: 1000 MG/DAY
     Route: 065
  8. FLUNITRAZEPAM [Concomitant]
     Dosage: 4 MG/DAY
     Route: 065

REACTIONS (3)
  - HYPERTRIGLYCERIDAEMIA [None]
  - HYPERCHOLESTEROLAEMIA [None]
  - DRUG INTERACTION [None]
